FAERS Safety Report 7940961-7 (Version None)
Quarter: 2011Q4

REPORT INFORMATION
  Report Type: 
  Country: None (occurrence: None)
  Receive Date: 20111128
  Receipt Date: 20111117
  Transmission Date: 20120403
  Serious: Yes (Hospitalization)
  Sender: FDA-Public Use
  Company Number: PHHY2011GB101154

PATIENT
  Age: 10 Year
  Sex: Male
  Weight: 57.6 kg

DRUGS (5)
  1. METRONIDAZOLE [Concomitant]
     Dosage: UNK
     Dates: start: 20111025, end: 20111101
  2. ACETAMINOPHEN [Concomitant]
  3. GENTAMICIN [Concomitant]
  4. IBUPROFEN [Concomitant]
  5. CEFUROXIME [Suspect]
     Dosage: UNK
     Dates: start: 20111025, end: 20111030

REACTIONS (5)
  - LIVER FUNCTION TEST ABNORMAL [None]
  - ALANINE AMINOTRANSFERASE INCREASED [None]
  - GAMMA-GLUTAMYLTRANSFERASE INCREASED [None]
  - TRANSAMINASES INCREASED [None]
  - BLOOD ALKALINE PHOSPHATASE INCREASED [None]
